FAERS Safety Report 17899738 (Version 1)
Quarter: 2020Q2

REPORT INFORMATION
  Report Type: Spontaneous
  Country: US (occurrence: US)
  Receive Date: 20200615
  Receipt Date: 20200615
  Transmission Date: 20200714
  Serious: Yes (Other)
  Sender: FDA-Public Use
  Company Number: None

PATIENT
  Age: 68 Year
  Sex: Female
  Weight: 76.5 kg

DRUGS (8)
  1. VITAMIN D2 [Concomitant]
     Active Substance: ERGOCALCIFEROL
     Dates: start: 20200605
  2. FAMOTIDINE. [Concomitant]
     Active Substance: FAMOTIDINE
     Dates: start: 20191009
  3. CLOTRIMAZOLE-BETAMETHASONE CREAM [Concomitant]
     Dates: start: 20180521
  4. ATENOLOL. [Concomitant]
     Active Substance: ATENOLOL
     Dates: start: 20170726
  5. PRAVASTATIN. [Concomitant]
     Active Substance: PRAVASTATIN
     Dates: start: 20180522
  6. PROPYLTHIOURACIL. [Concomitant]
     Active Substance: PROPYLTHIOURACIL
     Dates: start: 20170726
  7. CYCLOBENZAPRINE. [Suspect]
     Active Substance: CYCLOBENZAPRINE
     Indication: MUSCLE SPASMS
     Route: 048
     Dates: start: 20200511
  8. TRAMADOL. [Concomitant]
     Active Substance: TRAMADOL
     Dates: start: 20200605

REACTIONS (1)
  - Contusion [None]

NARRATIVE: CASE EVENT DATE: 20200513
